FAERS Safety Report 6067012-6 (Version None)
Quarter: 2009Q1

REPORT INFORMATION
  Report Type: 
  Country: None (occurrence: None)
  Receive Date: 20090203
  Receipt Date: 20090121
  Transmission Date: 20090719
  Serious: Yes (Other)
  Sender: FDA-Public Use
  Company Number: 232205K08USA

PATIENT
  Age: 27 Year
  Sex: Female
  Weight: 123 kg

DRUGS (3)
  1. REBIF [Suspect]
     Indication: MULTIPLE SCLEROSIS
     Dosage: 44 MCG, 3 IN 1 WEEKS, SUBCUTANEOUS
     Route: 058
     Dates: start: 20081020
  2. ALEVE (CAPLET) [Concomitant]
  3. NECON (NORMENSAL) [Concomitant]

REACTIONS (3)
  - BLINDNESS UNILATERAL [None]
  - OPTIC NEURITIS [None]
  - VISUAL ACUITY REDUCED [None]
